FAERS Safety Report 5090006-4 (Version None)
Quarter: 2006Q3

REPORT INFORMATION
  Report Type: 
  Country: None (occurrence: None)
  Receive Date: 20060731
  Receipt Date: 20060531
  Transmission Date: 20061208
  Serious: Yes (Other)
  Sender: FDA-Public Use
  Company Number: 200613008BWH

PATIENT
  Age: 37 Year
  Sex: Female

DRUGS (5)
  1. AVELOX [Suspect]
     Indication: DISEASE RECURRENCE
     Dosage: 400 MG, ONCE, ORAL
     Route: 048
     Dates: start: 20060120
  2. AVELOX [Suspect]
     Indication: SINUSITIS
     Dosage: 400 MG, ONCE, ORAL
     Route: 048
     Dates: start: 20060120
  3. BIRTH CONTROL PILLS (NOS) [Concomitant]
  4. PRILOSEC [Concomitant]
  5. ALBUTEROL [Concomitant]

REACTIONS (5)
  - ANAPHYLACTIC SHOCK [None]
  - ERYTHEMA [None]
  - GENERALISED ERYTHEMA [None]
  - PRURITUS [None]
  - SWELLING [None]
